FAERS Safety Report 6064447-2 (Version None)
Quarter: 2009Q1

REPORT INFORMATION
  Report Type: 
  Country: None (occurrence: None)
  Receive Date: 20090130
  Receipt Date: 20090121
  Transmission Date: 20090719
  Serious: Yes (Other)
  Sender: FDA-Public Use
  Company Number: DSU-2008-01740

PATIENT
  Sex: Female

DRUGS (1)
  1. AZOR [Suspect]
     Indication: HYPERTENSION
     Dosage: PER ORAL
     Route: 048
     Dates: start: 20080101, end: 20080101

REACTIONS (9)
  - BACK PAIN [None]
  - BLOOD PRESSURE INCREASED [None]
  - DYSPHAGIA [None]
  - FATIGUE [None]
  - FLUSHING [None]
  - MALAISE [None]
  - NAUSEA [None]
  - POLLAKIURIA [None]
  - TREMOR [None]
